FAERS Safety Report 8119688-7 (Version None)
Quarter: 2012Q1

REPORT INFORMATION
  Report Type: 
  Country: None (occurrence: None)
  Receive Date: 20120207
  Receipt Date: 20120203
  Transmission Date: 20120608
  Serious: Yes (Hospitalization, Other)
  Sender: FDA-Public Use
  Company Number: US-MERCK-1201USA04167

PATIENT
  Age: 52 Year
  Sex: Female
  Weight: 85 kg

DRUGS (12)
  1. LIPITOR [Concomitant]
     Route: 065
  2. LANTUS [Concomitant]
     Route: 065
  3. JANUMET [Suspect]
     Indication: TYPE 2 DIABETES MELLITUS
     Route: 048
     Dates: end: 20120124
  4. HUMALOG [Concomitant]
     Dosage: 2 TO 10 UNIT WITH MEALS
     Route: 065
  5. DIOVAN [Concomitant]
     Route: 065
  6. JANUVIA [Suspect]
     Route: 065
  7. PRILOSEC [Concomitant]
     Route: 065
  8. LOVAZA [Concomitant]
     Route: 048
  9. TRILIPIX [Concomitant]
     Route: 065
  10. ASPIRIN [Concomitant]
     Route: 065
  11. ZETIA [Concomitant]
     Route: 065
  12. GLIPIZIDE [Concomitant]
     Route: 065

REACTIONS (1)
  - PANCREATITIS ACUTE [None]
